FAERS Safety Report 12652949 (Version 1)
Quarter: 2016Q3

REPORT INFORMATION
  Report Type: Spontaneous
  Country: US (occurrence: US)
  Receive Date: 20160815
  Receipt Date: 20160815
  Transmission Date: 20161109
  Serious: No
  Sender: FDA-Public Use
  Company Number: US-AMNEAL PHARMACEUTICALS-2016AMN00395

PATIENT
  Sex: Female
  Weight: 71.2 kg

DRUGS (19)
  1. FREE STYLE TEST STRIPS [Concomitant]
  2. HYDRALAZINE [Concomitant]
     Active Substance: HYDRALAZINE HYDROCHLORIDE
     Dosage: 100 MG, 3X/DAY
  3. INSULIN [Concomitant]
     Active Substance: INSULIN NOS
     Dosage: UNK, 4X/DAY
     Dates: start: 20100401
  4. LYRICA [Concomitant]
     Active Substance: PREGABALIN
     Dosage: 75 MG, 2X/DAY
     Route: 048
     Dates: start: 20140421
  5. FABB VITAMIN B COMPLEX WITH FOLIC ACID [Concomitant]
     Dosage: UNK, 1X/DAY
     Route: 048
  6. TRAMADOL HYDROCHLORIDE. [Suspect]
     Active Substance: TRAMADOL HYDROCHLORIDE
  7. BUMETANIDE. [Concomitant]
     Active Substance: BUMETANIDE
     Dosage: 1 MG, 1X/DAY
  8. CLONIDINE. [Concomitant]
     Active Substance: CLONIDINE
     Dosage: 0.1 MG, 2X/DAY
     Route: 048
     Dates: start: 20150303
  9. METOLAZONE. [Concomitant]
     Active Substance: METOLAZONE
     Dosage: 5 MG, 1X/DAY
  10. FOLIC ACID. [Concomitant]
     Active Substance: FOLIC ACID
     Dosage: 1 MG, 1X/DAY
     Route: 048
  11. GABAPENTIN. [Concomitant]
     Active Substance: GABAPENTIN
     Dosage: 600 MG, 3X/DAY
     Route: 048
     Dates: start: 20150604
  12. CARVEDILOL. [Concomitant]
     Active Substance: CARVEDILOL
     Dosage: 25 MG, 2X/DAY
     Dates: start: 20130711
  13. FISH OIL [Concomitant]
     Active Substance: FISH OIL
     Dosage: 1000 MG, 3X/DAY
     Route: 048
     Dates: start: 20120917
  14. KLOR-CON [Concomitant]
     Active Substance: POTASSIUM CHLORIDE
     Dosage: UNK, 2X/DAY
  15. PROCRIT [Concomitant]
     Active Substance: ERYTHROPOIETIN
     Dosage: UNK, 1X/WEEK
     Route: 042
  16. AZELASTINE [Concomitant]
     Active Substance: AZELASTINE
     Dosage: UNK
     Dates: start: 20141202
  17. NOVOLOG [Concomitant]
     Active Substance: INSULIN ASPART
     Route: 058
  18. LEVEMIR [Concomitant]
     Active Substance: INSULIN DETEMIR
     Dosage: UNK
     Dates: start: 20121214
  19. FREE STYLE GLUCOSE MONITOR [Concomitant]
     Dosage: UNK, AS NEEDED
     Dates: start: 20141016

REACTIONS (5)
  - Nausea [None]
  - Abdominal discomfort [None]
  - Drug effect increased [None]
  - Somnolence [None]
  - Drug hypersensitivity [None]

NARRATIVE: CASE EVENT DATE: 2012
